FAERS Safety Report 14627370 (Version 1)
Quarter: 2018Q1

REPORT INFORMATION
  Report Type: Spontaneous
  Country: FR (occurrence: FR)
  Receive Date: 20180312
  Receipt Date: 20180312
  Transmission Date: 20180509
  Serious: Yes (Hospitalization)
  Sender: FDA-Public Use
  Company Number: FR-SA-2018SA061587

PATIENT
  Age: 78 Year
  Sex: Female

DRUGS (1)
  1. IRBESARTAN. [Suspect]
     Active Substance: IRBESARTAN
     Route: 048
     Dates: start: 20170208, end: 20170824

REACTIONS (12)
  - Arthralgia [Recovering/Resolving]
  - Disturbance in attention [Recovering/Resolving]
  - Cognitive disorder [Recovering/Resolving]
  - Hot flush [Recovered/Resolved]
  - Fatigue [Recovering/Resolving]
  - Muscle spasms [Recovered/Resolved]
  - Peripheral swelling [Recovering/Resolving]
  - Asthenia [Recovered/Resolved]
  - Musculoskeletal chest pain [Recovered/Resolved]
  - Limb discomfort [Recovered/Resolved]
  - Joint swelling [Recovering/Resolving]
  - Myalgia [Recovering/Resolving]

NARRATIVE: CASE EVENT DATE: 201703
